FAERS Safety Report 5014402-6 (Version None)
Quarter: 2006Q2

REPORT INFORMATION
  Report Type: 
  Country: None (occurrence: None)
  Receive Date: 20060531
  Receipt Date: 20060521
  Transmission Date: 20061013
  Serious: Yes (Other)
  Sender: FDA-Public Use
  Company Number: US-JNJFOC-20060504881

PATIENT
  Age: 6 Decade
  Sex: Female

DRUGS (2)
  1. REMICADE [Suspect]
     Indication: CROHN'S DISEASE
     Route: 042
  2. IMURAN [Concomitant]

REACTIONS (4)
  - BLINDNESS [None]
  - DEMYELINATION [None]
  - MULTIPLE SCLEROSIS [None]
  - OPTIC NEURITIS [None]
